FAERS Safety Report 7604899-7 (Version None)
Quarter: 2011Q3

REPORT INFORMATION
  Report Type: 
  Country: None (occurrence: None)
  Receive Date: 20110712
  Receipt Date: 20110706
  Transmission Date: 20111222
  Serious: Yes (Hospitalization)
  Sender: FDA-Public Use
  Company Number: US-BRISTOL-MYERS SQUIBB COMPANY-15878234

PATIENT
  Age: 75 Year
  Sex: Female

DRUGS (5)
  1. NITROGLYCERIN [Concomitant]
  2. PLAVIX [Concomitant]
  3. COUMADIN [Suspect]
     Indication: ATRIAL FIBRILLATION
     Dates: start: 20080501
  4. ZANTAC [Concomitant]
  5. NEXIUM [Concomitant]

REACTIONS (3)
  - GASTROOESOPHAGEAL REFLUX DISEASE [None]
  - ARTERIAL OCCLUSIVE DISEASE [None]
  - HEART VALVE INCOMPETENCE [None]
